FAERS Safety Report 21299425 (Version 1)
Quarter: 2022Q3

REPORT INFORMATION
  Report Type: Spontaneous
  Country: US (occurrence: US)
  Receive Date: 20220906
  Receipt Date: 20220906
  Transmission Date: 20221027
  Serious: Yes (Hospitalization, Other)
  Sender: FDA-Public Use
  Company Number: US-Blueprint Medicines Corporation-388

PATIENT
  Age: 50 Year
  Sex: Male

DRUGS (1)
  1. AYVAKIT [Suspect]
     Active Substance: AVAPRITINIB
     Indication: Mastocytic leukaemia
     Route: 048
     Dates: start: 20210322

REACTIONS (5)
  - Blood urea increased [Unknown]
  - Blood creatinine increased [Unknown]
  - Nephrolithiasis [Unknown]
  - Mineral supplementation [Unknown]
  - Kidney enlargement [Unknown]

NARRATIVE: CASE EVENT DATE: 20210901
